FAERS Safety Report 23492986 (Version 1)
Quarter: 2024Q1

REPORT INFORMATION
  Report Type: Spontaneous
  Country: US (occurrence: US)
  Receive Date: 20240207
  Receipt Date: 20240207
  Transmission Date: 20240409
  Serious: No
  Sender: FDA-Public Use
  Company Number: US-TEVA-VS-3150887

PATIENT
  Sex: Female

DRUGS (1)
  1. AUSTEDO [Suspect]
     Active Substance: DEUTETRABENAZINE
     Indication: Huntington^s disease
     Route: 065
     Dates: start: 2017

REACTIONS (2)
  - Bedridden [Unknown]
  - Huntington^s disease [Unknown]
